FAERS Safety Report 6338950-1 (Version None)
Quarter: 2009Q3

REPORT INFORMATION
  Report Type: 
  Country: None (occurrence: None)
  Receive Date: 20090903
  Receipt Date: 20090901
  Transmission Date: 20100115
  Serious: Yes (Other)
  Sender: FDA-Public Use
  Company Number: GB-B.I. PHARMACEUTICALS,INC./RIDGEFIELD-2009-UK-00506UK

PATIENT
  Age: 52 Year
  Sex: Female

DRUGS (11)
  1. TIOTROPIUM (00015/0190/A) [Suspect]
     Indication: ASTHMA
     Dosage: 18 MCG
     Route: 055
     Dates: start: 20090505, end: 20090509
  2. TIOTROPIUM (00015/0190/A) [Suspect]
     Indication: CHRONIC OBSTRUCTIVE PULMONARY DISEASE
  3. CO-CODAMOL [Concomitant]
     Indication: ANALGESIA
     Route: 048
     Dates: start: 20070101
  4. LANSOPRAZOLE [Concomitant]
     Indication: GASTRITIS
     Dosage: 15 MG
     Route: 048
     Dates: start: 20070101
  5. MONTELUKAST [Concomitant]
     Dosage: 10 MCG
     Route: 048
  6. SALBUTAMOL [Concomitant]
     Dosage: 100 MCG
     Route: 055
  7. SALBUTAMOL [Concomitant]
     Dosage: 1 MG
     Route: 055
  8. SERETIDE [Concomitant]
     Route: 055
  9. SERETIDE [Concomitant]
     Route: 055
  10. VIEPAX XL [Concomitant]
     Indication: DEPRESSION
     Dates: start: 20090301
  11. XENICAL [Concomitant]
     Indication: WEIGHT DECREASED
     Route: 048
     Dates: start: 20081201

REACTIONS (2)
  - ASTHMA [None]
  - HEADACHE [None]
